FAERS Safety Report 6824686-7 (Version None)
Quarter: 2010Q3

REPORT INFORMATION
  Report Type: 
  Country: None (occurrence: None)
  Receive Date: 20100708
  Receipt Date: 20061107
  Transmission Date: 20110219
  Serious: No
  Sender: FDA-Public Use
  Company Number: US-PFIZER INC-2006139888

PATIENT
  Sex: Female
  Weight: 61.23 kg

DRUGS (8)
  1. CHANTIX [Suspect]
     Indication: EX-TOBACCO USER
     Dosage: EVERY DAY
     Route: 048
     Dates: start: 20060917
  2. ALBUTEROL [Concomitant]
     Dates: start: 20030101
  3. LIPITOR [Concomitant]
  4. THEO-24 [Concomitant]
  5. DILTIAZEM [Concomitant]
  6. ALLEGRA D 24 HOUR [Concomitant]
  7. SPIRIVA [Concomitant]
     Dates: start: 20040101, end: 20061001
  8. PREDNISONE [Concomitant]
     Dates: end: 20060901

REACTIONS (2)
  - NAUSEA [None]
  - RENAL PAIN [None]
